FAERS Safety Report 9475309 (Version 3)
Quarter: 2013Q4

REPORT INFORMATION
  Report Type: Report from Study
  Country: DE (occurrence: DE)
  Receive Date: 20130826
  Receipt Date: 20131015
  Transmission Date: 20140711
  Serious: Yes (Hospitalization)
  Sender: FDA-Public Use
  Company Number: DE-ROCHE-1180045

PATIENT
  Age: 45 Year
  Sex: Female
  Weight: 68 kg

DRUGS (11)
  1. TOCILIZUMAB [Suspect]
     Indication: RHEUMATOID ARTHRITIS
     Dosage: THERAPY STARTED FROM 03/MAY/2011.
     Route: 042
     Dates: start: 20110503
  2. TOCILIZUMAB [Suspect]
     Dosage: THERAPY STARTED FROM 03/MAY/2011.
     Route: 065
     Dates: start: 20120201
  3. TOCILIZUMAB [Suspect]
     Dosage: THERAPY STARTED FROM 03/MAY/2011.
     Route: 065
     Dates: start: 20120910
  4. TOCILIZUMAB [Suspect]
     Dosage: THERAPY STARTED FROM 03/MAY/2011.
     Route: 065
     Dates: start: 20130201
  5. TOCILIZUMAB [Suspect]
     Dosage: THERAPY STARTED FROM 03/MAY/2011.
     Route: 065
     Dates: start: 20110725
  6. LEFLUNOMID [Concomitant]
     Indication: RHEUMATOID ARTHRITIS
     Route: 065
     Dates: start: 201008
  7. IBUPROFEN [Concomitant]
     Route: 065
     Dates: start: 200701
  8. PREDNISOLON [Concomitant]
     Indication: RHEUMATOID ARTHRITIS
     Route: 065
  9. PREDNISOLON [Concomitant]
     Route: 065
  10. PREDNISOLON [Concomitant]
     Route: 065
  11. OMEPRAZOLE [Concomitant]

REACTIONS (2)
  - Anaphylactic reaction [Recovered/Resolved]
  - Urticaria [Recovered/Resolved]
